FAERS Safety Report 9562380 (Version 1)
Quarter: 2013Q3

REPORT INFORMATION
  Report Type: Spontaneous
  Country: CA (occurrence: CA)
  Receive Date: 20130927
  Receipt Date: 20130927
  Transmission Date: 20140515
  Serious: Yes (Other)
  Sender: FDA-Public Use
  Company Number: CA-MERCK-1309CAN012988

PATIENT
  Age: 25 Year
  Sex: Female
  Weight: 77.98 kg

DRUGS (1)
  1. MARVELON [Suspect]
     Indication: PRODUCT USED FOR UNKNOWN INDICATION
     Dosage: 1 DF, QD
     Route: 048

REACTIONS (13)
  - Abdominal pain [Recovering/Resolving]
  - Anxiety [Recovering/Resolving]
  - Back pain [Recovering/Resolving]
  - Capillary fragility [Recovering/Resolving]
  - Ear pruritus [Recovering/Resolving]
  - Generalised erythema [Recovering/Resolving]
  - Hypersensitivity [Recovering/Resolving]
  - Menorrhagia [Recovering/Resolving]
  - Musculoskeletal pain [Recovering/Resolving]
  - Nasal congestion [Recovering/Resolving]
  - Neck pain [Recovering/Resolving]
  - Throat irritation [Recovering/Resolving]
  - Urticaria [Recovering/Resolving]
